FAERS Safety Report 7358314-1 (Version None)
Quarter: 2011Q1

REPORT INFORMATION
  Report Type: 
  Country: None (occurrence: None)
  Receive Date: 20110314
  Receipt Date: 20110314
  Transmission Date: 20110831
  Serious: Yes (Death, Life-Threatening, Hospitalization, Disabling, Congenital Anomaly, Other)
  Sender: FDA-Public Use
  Company Number: None

PATIENT
  Age: 57 Year
  Sex: Female
  Weight: 62.5964 kg

DRUGS (1)
  1. AVELOX [Suspect]
     Indication: SINUSITIS
     Dosage: 1 TABLET DAILY PO
     Route: 048
     Dates: start: 20110309, end: 20110310

REACTIONS (8)
  - TREMOR [None]
  - CONFUSIONAL STATE [None]
  - SUICIDAL IDEATION [None]
  - MENTAL IMPAIRMENT [None]
  - PARANOIA [None]
  - DEPRESSION [None]
  - DIZZINESS [None]
  - PANIC ATTACK [None]
